FAERS Safety Report 6539670-0 (Version None)
Quarter: 2010Q2

REPORT INFORMATION
  Report Type: 
  Country: None (occurrence: None)
  Receive Date: 20100111
  Receipt Date: 20100104
  Transmission Date: 20101027
  Serious: Yes (Hospitalization)
  Sender: FDA-Public Use
  Company Number: 2010SP000955

PATIENT
  Sex: Female

DRUGS (3)
  1. CLARINEX [Suspect]
     Indication: DRUG USE FOR UNKNOWN INDICATION
     Dosage: PO
     Route: 048
  2. NASONEX [Suspect]
     Indication: DRUG USE FOR UNKNOWN INDICATION
     Dosage: NAS
     Route: 045
  3. ELOCON [Suspect]
     Indication: DRUG USE FOR UNKNOWN INDICATION
     Dosage: TOP
     Route: 061

REACTIONS (1)
  - HERPES ZOSTER [None]
